FAERS Safety Report 16262014 (Version 8)
Quarter: 2025Q3

REPORT INFORMATION
  Report Type: Report from Study
  Country: US (occurrence: US)
  Receive Date: 20190501
  Receipt Date: 20250923
  Transmission Date: 20251021
  Serious: Yes (Other)
  Sender: TAKEDA
  Company Number: US-SHIRE-US201914037

PATIENT
  Sex: Male

DRUGS (3)
  1. IDURSULFASE [Suspect]
     Active Substance: IDURSULFASE
     Indication: Mucopolysaccharidosis II
     Dosage: UNK UNK, 1/WEEK
     Dates: start: 20141118
  2. IDURSULFASE [Suspect]
     Active Substance: IDURSULFASE
  3. IDURSULFASE [Suspect]
     Active Substance: IDURSULFASE
     Dosage: UNK UNK, 1/WEEK

REACTIONS (5)
  - Carpal tunnel syndrome [Recovered/Resolved]
  - Muscular weakness [Unknown]
  - Dyspnoea [Unknown]
  - Product dose omission issue [Unknown]
  - Asthenia [Unknown]
